FAERS Safety Report 17070067 (Version 1)
Quarter: 2019Q4

REPORT INFORMATION
  Report Type: Spontaneous
  Country: US (occurrence: US)
  Receive Date: 20191025
  Receipt Date: 20191025
  Transmission Date: 20200122
  Serious: No
  Sender: FDA-Public Use
  Company Number: None

PATIENT
  Sex: Male

DRUGS (1)
  1. VITRAKVI [Suspect]
     Active Substance: LAROTRECTINIB
     Indication: MALIGNANT CONNECTIVE TISSUE NEOPLASM
     Dosage: ?          OTHER DOSE:20MG/ML 5 ML ;?
     Route: 048
     Dates: start: 201907, end: 201910

REACTIONS (2)
  - Refusal of treatment by relative [None]
  - Psychomotor hyperactivity [None]
